FAERS Safety Report 25171056 (Version 1)
Quarter: 2025Q2

REPORT INFORMATION
  Report Type: Spontaneous
  Country: US (occurrence: US)
  Receive Date: 20250408
  Receipt Date: 20250408
  Transmission Date: 20250716
  Serious: Yes (Death)
  Sender: CATALYST PHARMA
  Company Number: US-CATALYST PHARMACEUTICALS, INC-US-CATA-25-00488

PATIENT
  Sex: Male
  Weight: 121.09 kg

DRUGS (6)
  1. FIRDAPSE [Suspect]
     Active Substance: AMIFAMPRIDINE PHOSPHATE
     Indication: Myasthenic syndrome
     Dosage: 10 MG 3 TIMES DAILY FOR 3 DAYS, THEN INCREASE BY 5 MG EVERY 3 DAYS TO A MAX DOSE OF 10 TABLETS
     Route: 048
     Dates: start: 20240716, end: 202408
  2. FIRDAPSE [Suspect]
     Active Substance: AMIFAMPRIDINE PHOSPHATE
     Dosage: 10 TABLETS TOTAL DAILY IN DIVIDED DOSES
     Route: 048
     Dates: start: 20240827, end: 20250329
  3. PREDNISONE [Concomitant]
     Active Substance: PREDNISONE
     Indication: Myasthenic syndrome
     Route: 065
  4. PREDNISONE [Concomitant]
     Active Substance: PREDNISONE
     Indication: Rash
  5. SENNA LAXATIVE [Concomitant]
     Active Substance: SENNOSIDES
     Indication: Constipation
     Route: 065
  6. COLACE [Concomitant]
     Active Substance: DOCUSATE SODIUM
     Indication: Constipation
     Route: 065

REACTIONS (4)
  - Small cell lung cancer [Fatal]
  - Disease progression [Fatal]
  - Myasthenic syndrome [Fatal]
  - Disease progression [Fatal]
